FAERS Safety Report 5227422-3 (Version None)
Quarter: 2007Q1

REPORT INFORMATION
  Report Type: 
  Country: None (occurrence: None)
  Receive Date: 20061201
  Receipt Date: 20060926
  Transmission Date: 20070707
  Serious: No
  Sender: FDA-Public Use
  Company Number: US200609006785

PATIENT
  Sex: Female

DRUGS (1)
  1. CYMBALTA [Suspect]
     Indication: DEPRESSION
     Dosage: 80 MG, ORAL
     Route: 048
     Dates: start: 20050101, end: 20050101

REACTIONS (1)
  - DEPRESSIVE SYMPTOM [None]
